FAERS Safety Report 12337433 (Version 2)
Quarter: 2016Q2

REPORT INFORMATION
  Report Type: Report from Study
  Country: US (occurrence: US)
  Receive Date: 20160505
  Receipt Date: 20160526
  Transmission Date: 20160815
  Serious: Yes (Other)
  Sender: FDA-Public Use
  Company Number: US-BIOGEN-2016BI00231442

PATIENT
  Age: 60 Year
  Sex: Female
  Weight: 77.18 kg

DRUGS (1)
  1. TECFIDERA [Suspect]
     Active Substance: DIMETHYL FUMARATE
     Indication: MULTIPLE SCLEROSIS
     Dosage: MAINTENANCE DOSE
     Route: 048
     Dates: start: 20150323, end: 20160427

REACTIONS (2)
  - Lung neoplasm malignant [Not Recovered/Not Resolved]
  - Colorectal cancer metastatic [Not Recovered/Not Resolved]

NARRATIVE: CASE EVENT DATE: 20160428
